FAERS Safety Report 21065314 (Version 1)
Quarter: 2022Q3

REPORT INFORMATION
  Report Type: Spontaneous
  Country: CN (occurrence: CN)
  Receive Date: 20220711
  Receipt Date: 20220711
  Transmission Date: 20221026
  Serious: Yes (Life-Threatening)
  Sender: FDA-Public Use
  Company Number: CN-BAYER-2022A095485

PATIENT
  Age: 56 Year
  Sex: Female
  Weight: 75 kg

DRUGS (1)
  1. ULTRAVIST [Suspect]
     Active Substance: IOPROMIDE
     Indication: Computerised tomogram coronary artery
     Dosage: UNK
     Dates: start: 20220707, end: 20220707

REACTIONS (6)
  - Visual impairment [None]
  - Muscular weakness [None]
  - Fall [None]
  - Hyperhidrosis [None]
  - Blood pressure decreased [None]
  - Flushing [None]

NARRATIVE: CASE EVENT DATE: 20220707
